FAERS Safety Report 8609727-9 (Version None)
Quarter: 2012Q3

REPORT INFORMATION
  Report Type: 
  Country: None (occurrence: None)
  Receive Date: 20120821
  Receipt Date: 20120810
  Transmission Date: 20120928
  Serious: Yes (Other)
  Sender: FDA-Public Use
  Company Number: ES-JNJFOC-20120809448

PATIENT
  Age: 36 Year
  Sex: Female

DRUGS (7)
  1. PREZISTA [Suspect]
     Indication: HIV INFECTION
     Route: 065
     Dates: start: 20100801
  2. ABACAVIR [Suspect]
     Indication: HIV INFECTION
     Route: 065
     Dates: start: 20100801
  3. PENTAMIDINE [Suspect]
     Indication: PRODUCT USED FOR UNKNOWN INDICATION
     Route: 065
     Dates: start: 20100801
  4. CLONAZEPAM [Suspect]
     Indication: PRODUCT USED FOR UNKNOWN INDICATION
     Route: 065
     Dates: start: 20100801
  5. RITONAVIR [Suspect]
     Indication: HIV INFECTION
     Route: 065
     Dates: start: 20100801
  6. RALTEGRAVIR [Suspect]
     Indication: HIV INFECTION
     Route: 065
     Dates: start: 20100801
  7. INTELENCE [Suspect]
     Indication: HIV INFECTION
     Route: 065
     Dates: start: 20100801

REACTIONS (3)
  - LEFT VENTRICULAR HYPERTROPHY [None]
  - HYPERTENSIVE ENCEPHALOPATHY [None]
  - ABDOMINAL PAIN [None]
